FAERS Safety Report 9214684 (Version 3)
Quarter: 2013Q3

REPORT INFORMATION
  Report Type: Spontaneous
  Country: ZA (occurrence: None)
  Receive Date: 20130403
  Receipt Date: 20130924
  Transmission Date: 20140515
  Serious: Yes (Death)
  Sender: FDA-Public Use
  Company Number: 1660273

PATIENT
  Age: 67 Year
  Sex: Male

DRUGS (2)
  1. DEXMEDETOMIDINE HYDROCHLORIDE [Suspect]
     Indication: SEDATIVE THERAPY
     Dates: start: 20121231
  2. DEXMEDETOMIDINE HYDROCHLORIDE [Suspect]
     Indication: CHRONIC OBSTRUCTIVE PULMONARY DISEASE
     Dates: start: 20121231

REACTIONS (1)
  - Off label use [None]
